FAERS Safety Report 7590469-6 (Version None)
Quarter: 2011Q3

REPORT INFORMATION
  Report Type: 
  Country: None (occurrence: None)
  Receive Date: 20110705
  Receipt Date: 20110628
  Transmission Date: 20111222
  Serious: Yes (Life-Threatening, Hospitalization)
  Sender: FDA-Public Use
  Company Number: DK-PFIZER INC-2011144632

PATIENT
  Age: 72 Year
  Sex: Female

DRUGS (8)
  1. MAGNYL ^DAK^ [Concomitant]
  2. PIPERACILLIN AND TAZOBACTAM [Suspect]
     Indication: PNEUMONIA
     Dosage: 4.5 G, 3X/DAY
     Route: 042
     Dates: start: 20110620, end: 20110620
  3. MAGNESIUM HYDROXIDE [Concomitant]
  4. SERETIDE [Concomitant]
  5. MIRTAZAPINE [Concomitant]
  6. ESCITALOPRAM [Concomitant]
  7. SPIRIVA [Concomitant]
  8. BUPRENORPHINE [Concomitant]

REACTIONS (1)
  - ANGIOEDEMA [None]
